FAERS Safety Report 8065366-2 (Version None)
Quarter: 2012Q1

REPORT INFORMATION
  Report Type: 
  Country: None (occurrence: None)
  Receive Date: 20120124
  Receipt Date: 20120110
  Transmission Date: 20120608
  Serious: Yes (Hospitalization)
  Sender: FDA-Public Use
  Company Number: DE-AMGEN-DEUCT2012003459

PATIENT
  Sex: Male

DRUGS (5)
  1. ETANERCEPT [Suspect]
     Indication: RHEUMATOID ARTHRITIS
     Dosage: 50 MG, UNK
     Dates: start: 20100201
  2. DECORTIN-H                         /00016201/ [Concomitant]
     Dosage: 5 MG, 1X/DAY
  3. IBUPROFEN [Concomitant]
     Dosage: 800 MG, AS NEEDED
  4. PANTOZOL                           /01263204/ [Concomitant]
     Dosage: 40 MG, 1X/DAY
  5. LEFLUNOMIDE [Suspect]
     Dosage: 20 MG, DAILY
     Dates: start: 20060201

REACTIONS (1)
  - DIVERTICULAR PERFORATION [None]
